FAERS Safety Report 21659043 (Version 1)
Quarter: 2022Q4

REPORT INFORMATION
  Report Type: Spontaneous
  Country: AR (occurrence: AR)
  Receive Date: 20221129
  Receipt Date: 20221129
  Transmission Date: 20230113
  Serious: Yes (Hospitalization)
  Sender: FDA-Public Use
  Company Number: AR-MYLANLABS-2022M1132889

PATIENT
  Sex: Male

DRUGS (4)
  1. CLOZAPINE [Suspect]
     Active Substance: CLOZAPINE
     Indication: Product used for unknown indication
     Dosage: 75 MILLIGRAM, QD
     Route: 065
     Dates: start: 20221108
  2. LEVOMEPROMAZINE [Concomitant]
     Active Substance: LEVOMEPROMAZINE
     Dosage: UNK
     Route: 065
  3. HALOPERIDOL [Concomitant]
     Active Substance: HALOPERIDOL
     Dosage: UNK
     Route: 065
  4. DIAZEPAM [Concomitant]
     Active Substance: DIAZEPAM
     Dosage: UNK
     Route: 065

REACTIONS (2)
  - Lower limb fracture [Unknown]
  - Wound dehiscence [Unknown]
